FAERS Safety Report 4432575-0 (Version None)
Quarter: 2004Q3

REPORT INFORMATION
  Report Type: 
  Country: None (occurrence: None)
  Receive Date: 20040820
  Receipt Date: 20040810
  Transmission Date: 20050211
  Serious: Yes (Hospitalization)
  Sender: FDA-Public Use
  Company Number: 2004-03571

PATIENT
  Age: 69 Year
  Sex: Female

DRUGS (3)
  1. ENALAPRIL MALEATE [Suspect]
     Indication: HYPERTENSION
     Dosage: 20 MG, DAILY, ORAL
     Route: 048
     Dates: start: 19890101
  2. ESTROGEN REPLACEMENT THERAPY [Concomitant]
  3. LOVASTATIN [Concomitant]

REACTIONS (1)
  - ANGIONEUROTIC OEDEMA [None]
